FAERS Safety Report 4713435-4 (Version None)
Quarter: 2005Q3

REPORT INFORMATION
  Report Type: 
  Country: None (occurrence: None)
  Receive Date: 20050713
  Receipt Date: 20050610
  Transmission Date: 20060218
  Serious: Yes (Hospitalization)
  Sender: FDA-Public Use
  Company Number: FI-ROCHE-407422

PATIENT
  Age: 59 Year
  Sex: Female

DRUGS (19)
  1. DACLIZUMAB [Suspect]
     Route: 042
     Dates: start: 20040721, end: 20040721
  2. DACLIZUMAB [Suspect]
     Route: 042
     Dates: start: 20040727, end: 20040727
  3. MYCOPHENOLATE MOFETIL [Suspect]
     Route: 042
     Dates: start: 20040721, end: 20041020
  4. MYCOPHENOLATE MOFETIL [Suspect]
     Route: 048
     Dates: start: 20041021
  5. TACROLIMUS [Suspect]
     Dosage: DOSAGE ADJUSTED TO REACH PREDEFINED TARGET LEVELS.
     Route: 048
     Dates: start: 20040725, end: 20050608
  6. TACROLIMUS [Suspect]
     Dosage: DOSE CHANGE DUE TO ADVERSE EVENT/TOXICITY.
     Route: 048
     Dates: start: 20050609
  7. METHYLPREDNISOLONE 16MG TAB [Suspect]
     Dosage: DOSAGE TAPERED ACCORDING TO LOCAL PROTOCOL.
     Route: 065
     Dates: start: 20040721
  8. OMEPRAZOLE [Concomitant]
     Indication: PROPHYLAXIS
     Dates: start: 20040721, end: 20041020
  9. FLUKONAZOL [Concomitant]
     Dates: start: 20040721, end: 20040724
  10. METRONIDAZOLE [Concomitant]
     Dates: start: 20040721, end: 20040724
  11. VANCOMYCIN [Concomitant]
     Dates: start: 20040621, end: 20040724
  12. DALTEPARIN NATRIUM [Concomitant]
     Indication: PROPHYLAXIS
     Dates: start: 20040722, end: 20040805
  13. FUROSEMIDE [Concomitant]
     Dates: start: 20040721, end: 20040722
  14. TRAMADOL HYDROCHLORID [Concomitant]
     Dates: start: 20040724, end: 20040729
  15. OXYCODON HCL [Concomitant]
     Dates: start: 20040721, end: 20040723
  16. ZOPICLON [Concomitant]
     Dates: start: 20040803, end: 20040803
  17. LACTULOSE [Concomitant]
     Dates: start: 20040724, end: 20040726
  18. WARFARIN NATRIUM [Concomitant]
     Indication: PROPHYLAXIS
     Dates: start: 20040729
  19. TRIMETHOPRIM [Concomitant]
     Indication: PROPHYLAXIS
     Dates: start: 20040805

REACTIONS (2)
  - HEPATIC ENZYME INCREASED [None]
  - HERPES ZOSTER [None]
